FAERS Safety Report 12118904 (Version 1)
Quarter: 2016Q1

REPORT INFORMATION
  Report Type: Spontaneous
  Country: FR (occurrence: FR)
  Receive Date: 20160226
  Receipt Date: 20160226
  Transmission Date: 20160526
  Serious: Yes (Hospitalization)
  Sender: FDA-Public Use
  Company Number: FR-ELI_LILLY_AND_COMPANY-FR201602009148

PATIENT
  Age: 65 Year
  Sex: Male

DRUGS (15)
  1. VALSARTAN. [Concomitant]
     Active Substance: VALSARTAN
     Indication: PRODUCT USED FOR UNKNOWN INDICATION
     Dosage: 40 MG, UNK
  2. INEXIUM                            /01479302/ [Concomitant]
     Active Substance: ESOMEPRAZOLE MAGNESIUM
     Indication: PRODUCT USED FOR UNKNOWN INDICATION
     Dosage: 20 MG, UNK
  3. XATRAL [Concomitant]
     Active Substance: ALFUZOSIN
     Indication: PRODUCT USED FOR UNKNOWN INDICATION
     Dosage: 10 MG, UNK
  4. TERBUTALINE [Concomitant]
     Active Substance: TERBUTALINE
     Indication: PRODUCT USED FOR UNKNOWN INDICATION
     Dosage: UNK
  5. CISPLATIN. [Concomitant]
     Active Substance: CISPLATIN
     Indication: SQUAMOUS CELL CARCINOMA
     Dosage: 100 MG/M2, UNK
     Route: 042
  6. CETUXIMAB [Suspect]
     Active Substance: CETUXIMAB
     Dosage: 250 MG/M2, WEEKLY (1/W)
     Route: 042
     Dates: end: 20151228
  7. KARDEGIC [Concomitant]
     Active Substance: ASPIRIN LYSINE
     Indication: PRODUCT USED FOR UNKNOWN INDICATION
     Dosage: 75 MG, UNK
  8. CARBOPLATIN. [Suspect]
     Active Substance: CARBOPLATIN
     Indication: SQUAMOUS CELL CARCINOMA
     Dosage: UNK UNK, UNKNOWN
     Route: 042
     Dates: start: 20151209, end: 20151228
  9. METFORMIN [Concomitant]
     Active Substance: METFORMIN HYDROCHLORIDE
     Indication: PRODUCT USED FOR UNKNOWN INDICATION
     Dosage: 500 MG, UNK
  10. FLUOROURACIL ACCORD [Suspect]
     Active Substance: FLUOROURACIL
     Indication: SQUAMOUS CELL CARCINOMA
     Dosage: 4000 MG/M2, CYCLICAL
     Route: 042
     Dates: start: 201510, end: 20151228
  11. IXPRIM [Concomitant]
     Active Substance: ACETAMINOPHEN\TRAMADOL HYDROCHLORIDE
     Indication: PRODUCT USED FOR UNKNOWN INDICATION
     Dosage: UNK
  12. CETUXIMAB [Suspect]
     Active Substance: CETUXIMAB
     Indication: SQUAMOUS CELL CARCINOMA
     Dosage: 400 MG/M2, CYCLICAL
     Route: 042
     Dates: end: 20151228
  13. ZOPICLONE [Concomitant]
     Active Substance: ZOPICLONE
     Indication: PRODUCT USED FOR UNKNOWN INDICATION
     Dosage: 7.5 MG, UNK
  14. AVODART [Concomitant]
     Active Substance: DUTASTERIDE
     Indication: PRODUCT USED FOR UNKNOWN INDICATION
     Dosage: .5 MG, UNK
  15. PULMICORT TURBUHALER [Concomitant]
     Active Substance: BUDESONIDE
     Indication: PRODUCT USED FOR UNKNOWN INDICATION
     Dosage: UNK

REACTIONS (2)
  - Atrial fibrillation [Not Recovered/Not Resolved]
  - Atrial flutter [Not Recovered/Not Resolved]

NARRATIVE: CASE EVENT DATE: 20151214
